FAERS Safety Report 8450586-5 (Version None)
Quarter: 2012Q2

REPORT INFORMATION
  Report Type: 
  Country: None (occurrence: None)
  Receive Date: 20120620
  Receipt Date: 20120614
  Transmission Date: 20120825
  Serious: Yes (Hospitalization)
  Sender: FDA-Public Use
  Company Number: US-PFIZER INC-2012144452

PATIENT
  Sex: Male
  Weight: 98.413 kg

DRUGS (4)
  1. NEURONTIN [Suspect]
     Indication: PAIN IN EXTREMITY
     Dosage: 300 MG, 3X/DAY
     Route: 048
     Dates: end: 20120601
  2. SYNTHROID [Concomitant]
     Indication: HYPOTHYROIDISM
     Dosage: 25 UG, UNK
  3. LISINOPRIL [Concomitant]
     Indication: HYPERTENSION
     Dosage: 10 MG, DAILY
  4. COREG CR [Concomitant]
     Indication: HYPERTENSION
     Dosage: 10 MG, 2X/DAY
     Route: 048

REACTIONS (1)
  - CARDIAC DISORDER [None]
